FAERS Safety Report 4516112-8 (Version None)
Quarter: 2004Q4

REPORT INFORMATION
  Report Type: 
  Country: None (occurrence: None)
  Receive Date: 20041129
  Receipt Date: 20041119
  Transmission Date: 20050328
  Serious: Yes (Hospitalization, Other)
  Sender: FDA-Public Use
  Company Number: 2004-11-1402

PATIENT
  Age: 57 Year
  Sex: Male

DRUGS (2)
  1. INTRON A [Suspect]
     Indication: CHRONIC MYELOID LEUKAEMIA
     Dosage: 5 MIU QD
     Dates: start: 19960501, end: 20010602
  2. HYDROXYUREA [Suspect]
     Indication: CHRONIC MYELOID LEUKAEMIA
     Dosage: 500 MG QD
     Dates: start: 19960501, end: 20010602

REACTIONS (3)
  - GLOMERULOSCLEROSIS [None]
  - HAEMOLYTIC URAEMIC SYNDROME [None]
  - PROTEINURIA [None]
